FAERS Safety Report 10191105 (Version 1)
Quarter: 2014Q2

REPORT INFORMATION
  Report Type: Spontaneous
  Country: IT (occurrence: IT)
  Receive Date: 20140523
  Receipt Date: 20140523
  Transmission Date: 20141212
  Serious: Yes (Hospitalization)
  Sender: FDA-Public Use
  Company Number: PHHY2014IT062705

PATIENT
  Age: 34 Year
  Sex: Male

DRUGS (2)
  1. GILENYA [Suspect]
     Indication: MULTIPLE SCLEROSIS
     Dosage: 1 DF, QD
     Route: 048
     Dates: start: 20140409
  2. OXYBUTYNIN [Concomitant]
     Dosage: 7.5 MG, UNK
     Route: 048

REACTIONS (3)
  - Erysipelas [Recovered/Resolved]
  - Skin oedema [Recovered/Resolved]
  - Skin discolouration [Recovered/Resolved]
